FAERS Safety Report 6859378-1 (Version None)
Quarter: 2010Q3

REPORT INFORMATION
  Report Type: 
  Country: None (occurrence: None)
  Receive Date: 20100719
  Receipt Date: 20080517
  Transmission Date: 20110219
  Serious: No
  Sender: FDA-Public Use
  Company Number: US-PFIZER INC-2008018491

PATIENT
  Sex: Female
  Weight: 61.23 kg

DRUGS (3)
  1. CHANTIX [Suspect]
     Indication: SMOKING CESSATION THERAPY
     Dates: start: 20080101
  2. INDERAL [Concomitant]
     Indication: MIGRAINE
  3. ANTIBIOTICS [Concomitant]

REACTIONS (3)
  - AGITATION [None]
  - INCORRECT DOSE ADMINISTERED [None]
  - TOOTH INFECTION [None]
